FAERS Safety Report 9509598 (Version 2)
Quarter: 2014Q3

REPORT INFORMATION
  Report Type: Spontaneous
  Country: US (occurrence: US)
  Receive Date: 20130909
  Receipt Date: 20140908
  Transmission Date: 20150326
  Serious: No
  Sender: FDA-Public Use
  Company Number: US-BRISTOL-MYERS SQUIBB COMPANY-18916379

PATIENT
  Age: 61 Year
  Sex: Male

DRUGS (7)
  1. CARVEDILOL + HCTZ [Concomitant]
  2. SIMVASTATIN. [Concomitant]
     Active Substance: SIMVASTATIN
  3. IBUPROFEN. [Concomitant]
     Active Substance: IBUPROFEN
     Dates: start: 201210
  4. WARFARIN [Concomitant]
     Active Substance: WARFARIN
  5. FRAGMIN [Concomitant]
     Active Substance: DALTEPARIN SODIUM
  6. ZOLOFT [Concomitant]
     Active Substance: SERTRALINE HYDROCHLORIDE
     Dates: start: 201305
  7. ABILIFY [Suspect]
     Active Substance: ARIPIPRAZOLE
     Indication: MANIA
     Dosage: DOSE REDUCED TO 5 MG IN MAY13
     Route: 048
     Dates: start: 201211

REACTIONS (5)
  - Fatigue [Unknown]
  - Energy increased [Unknown]
  - Insomnia [Unknown]
  - Agitation [Unknown]
  - Nervousness [Unknown]

NARRATIVE: CASE EVENT DATE: 201211
